FAERS Safety Report 9540292 (Version 1)
Quarter: 2013Q3

REPORT INFORMATION
  Report Type: Spontaneous
  Country: JP (occurrence: JP)
  Receive Date: 20130920
  Receipt Date: 20130920
  Transmission Date: 20140515
  Serious: Yes (Other)
  Sender: FDA-Public Use
  Company Number: JP-ASTRAZENECA-2013SE69187

PATIENT
  Age: 94 Year
  Sex: Female

DRUGS (1)
  1. MARCAINE SPINAL [Suspect]
     Indication: SPINAL ANAESTHESIA
     Dosage: WERE MIXED IN A RATIO OF 2:1 TO PREPARE 3.0 ML OF 0.33% HYPOBARIC BUPIVACAINE
     Route: 037

REACTIONS (3)
  - Loss of consciousness [Recovered/Resolved]
  - Transient ischaemic attack [Unknown]
  - Blood pressure decreased [Recovered/Resolved]
